FAERS Safety Report 5519899-0 (Version None)
Quarter: 2007Q4

REPORT INFORMATION
  Report Type: 
  Country: None (occurrence: None)
  Receive Date: 20071116
  Receipt Date: 20071016
  Transmission Date: 20080405
  Serious: No
  Sender: FDA-Public Use
  Company Number: A0688002A

PATIENT
  Age: 82 Year
  Sex: Male

DRUGS (3)
  1. COREG CR [Suspect]
     Indication: ATRIAL FIBRILLATION
     Dosage: 40MG PER DAY
     Route: 048
     Dates: start: 20070901
  2. CARDIZEM [Concomitant]
  3. PLAVIX [Concomitant]

REACTIONS (3)
  - ANXIETY [None]
  - DIZZINESS [None]
  - FEELING ABNORMAL [None]
